FAERS Safety Report 4930880-2 (Version None)
Quarter: 2006Q1

REPORT INFORMATION
  Report Type: 
  Country: None (occurrence: None)
  Receive Date: 20060227
  Receipt Date: 20060210
  Transmission Date: 20060701
  Serious: Yes (Other)
  Sender: FDA-Public Use
  Company Number: 2006-0009214

PATIENT
  Age: 56 Year
  Sex: Male

DRUGS (3)
  1. HEPSERA [Suspect]
     Indication: HEPATITIS B
  2. LAMIVUDINE [Concomitant]
  3. OMEPRAZOLE [Concomitant]

REACTIONS (5)
  - ALANINE AMINOTRANSFERASE INCREASED [None]
  - ANTI-PLATELET ANTIBODY POSITIVE [None]
  - HEPATITIS B DNA ASSAY POSITIVE [None]
  - SPLENOMEGALY [None]
  - THROMBOCYTOPENIA [None]
